FAERS Safety Report 13343490 (Version 1)
Quarter: 2017Q1

REPORT INFORMATION
  Report Type: Spontaneous
  Country: US (occurrence: US)
  Receive Date: 20170316
  Receipt Date: 20170316
  Transmission Date: 20170428
  Serious: Yes (Hospitalization)
  Sender: FDA-Public Use
  Company Number: US-BEH-2017078823

PATIENT
  Age: 82 Year
  Sex: Male
  Weight: 81.63 kg

DRUGS (16)
  1. FUROSEMIDE. [Concomitant]
     Active Substance: FUROSEMIDE
  2. NEUPOGEN [Concomitant]
     Active Substance: FILGRASTIM
  3. CALCIUM [Concomitant]
     Active Substance: CALCIUM
  4. VALSARTAN HYDROCHLOROTHIAZIDE KRKA [Concomitant]
     Active Substance: HYDROCHLOROTHIAZIDE\VALSARTAN
  5. HIZENTRA [Suspect]
     Active Substance: HUMAN IMMUNOGLOBULIN G
     Indication: PLASMA CELL MYELOMA
     Dosage: 10 G, QW
     Route: 058
     Dates: start: 20170109
  6. REVLIMID [Concomitant]
     Active Substance: LENALIDOMIDE
  7. DUTASTERIDE. [Concomitant]
     Active Substance: DUTASTERIDE
  8. RECLAST [Concomitant]
     Active Substance: ZOLEDRONIC ACID
  9. DEXAMETHASONE. [Concomitant]
     Active Substance: DEXAMETHASONE
  10. ASPIRIN. [Concomitant]
     Active Substance: ASPIRIN
  11. METAMUCIL [Concomitant]
     Active Substance: PLANTAGO SEED
  12. PANTOPRAZOLE [Concomitant]
     Active Substance: PANTOPRAZOLE SODIUM
  13. TRAMADOL. [Concomitant]
     Active Substance: TRAMADOL
  14. ARANESP [Concomitant]
     Active Substance: DARBEPOETIN ALFA
  15. HIZENTRA [Suspect]
     Active Substance: HUMAN IMMUNOGLOBULIN G
     Dosage: UNK
     Route: 058
  16. VITAMIN B [Concomitant]
     Active Substance: VITAMIN B

REACTIONS (2)
  - Red blood cell count decreased [Unknown]
  - Atrial fibrillation [Unknown]

NARRATIVE: CASE EVENT DATE: 20170124
